FAERS Safety Report 8848360 (Version 1)
Quarter: 2012Q4

REPORT INFORMATION
  Report Type: 
  Country: US (occurrence: US)
  Receive Date: 20121018
  Receipt Date: 20121018
  Transmission Date: 20130627
  Serious: Yes (Life-Threatening, Hospitalization)
  Sender: FDA-Public Use
  Company Number: US-ROXANE LABORATORIES, INC.-2012-EU-05170GD

PATIENT
  Age: 52 Year
  Sex: Male

DRUGS (5)
  1. SERTRALINE [Suspect]
     Indication: DEPRESSION
     Dosage: dose escalated to 200 mg gradually over a period of 6 months
  2. SERTRALINE [Suspect]
     Dosage: 400 mg
  3. SERTRALINE [Suspect]
     Dosage: dose escalated to 200 mg gradually over a period of 2 months
  4. SERTRALINE [Suspect]
     Dosage: 200 mg
  5. ARIPIPRAZOLE [Concomitant]
     Indication: DEPRESSION

REACTIONS (5)
  - Respiratory failure [Unknown]
  - Diffuse alveolar damage [Unknown]
  - Dyspnoea [Unknown]
  - Cough [Unknown]
  - Hypoxia [Unknown]
